FAERS Safety Report 21442378 (Version 1)
Quarter: 2022Q4

REPORT INFORMATION
  Report Type: Report from Study
  Country: US (occurrence: US)
  Receive Date: 20221011
  Receipt Date: 20221011
  Transmission Date: 20230113
  Serious: No
  Sender: FDA-Public Use
  Company Number: US-ABBVIE-4147687

PATIENT
  Age: 46 Year
  Sex: Female

DRUGS (1)
  1. SKYRIZI [Suspect]
     Active Substance: RISANKIZUMAB-RZAA
     Indication: Product used for unknown indication
     Route: 058

REACTIONS (6)
  - Hordeolum [Recovered/Resolved]
  - Hordeolum [Recovered/Resolved]
  - Skin infection [Not Recovered/Not Resolved]
  - Nausea [Recovered/Resolved]
  - Erythema [Unknown]
  - Breast swelling [Unknown]

NARRATIVE: CASE EVENT DATE: 20220916
